FAERS Safety Report 7014982-5 (Version None)
Quarter: 2010Q3

REPORT INFORMATION
  Report Type: 
  Country: None (occurrence: None)
  Receive Date: 20100927
  Receipt Date: 20100323
  Transmission Date: 20110219
  Serious: No
  Sender: FDA-Public Use
  Company Number: US-ASTRAZENECA-2010SE13057

PATIENT
  Sex: Female

DRUGS (1)
  1. ARIMIDEX [Suspect]
     Indication: NEOPLASM MALIGNANT
     Route: 048
     Dates: start: 20100118

REACTIONS (5)
  - ASTHENIA [None]
  - BACK PAIN [None]
  - DYSPNOEA [None]
  - HOT FLUSH [None]
  - QUALITY OF LIFE DECREASED [None]
